FAERS Safety Report 15013179 (Version 1)
Quarter: 2018Q2

REPORT INFORMATION
  Report Type: Spontaneous
  Country: US (occurrence: US)
  Receive Date: 20180522
  Receipt Date: 20180522
  Transmission Date: 20180711
  Serious: No
  Sender: FDA-Public Use
  Company Number: None

PATIENT
  Age: 4 Month
  Sex: Male

DRUGS (1)
  1. BENZOCAINE. [Suspect]
     Active Substance: BENZOCAINE

REACTIONS (1)
  - Respiratory failure [None]
